FAERS Safety Report 5107035-4 (Version None)
Quarter: 2006Q3

REPORT INFORMATION
  Report Type: 
  Country: None (occurrence: None)
  Receive Date: 20060913
  Receipt Date: 20060829
  Transmission Date: 20061208
  Serious: Yes (Other)
  Sender: FDA-Public Use
  Company Number: 06-000931

PATIENT
  Sex: Female

DRUGS (4)
  1. FEMRING [Suspect]
     Dosage: QD, VAGINAL
     Route: 067
     Dates: start: 20030708
  2. FLUVOXAMINE MALEATE [Concomitant]
  3. OMEPRAZOLE [Concomitant]
  4. MEBEVERINE (MEBEVERINE) [Concomitant]

REACTIONS (2)
  - ADDISON'S DISEASE [None]
  - LYMPHOCYTOSIS [None]
